FAERS Safety Report 4985083-2 (Version None)
Quarter: 2006Q1

REPORT INFORMATION
  Report Type: 
  Country: None (occurrence: None)
  Receive Date: 20060309
  Receipt Date: 20050823
  Transmission Date: 20060701
  Serious: Yes (Other)
  Sender: FDA-Public Use
  Company Number: 415658

PATIENT
  Sex: 0

DRUGS (4)
  1. ACCUTANE [Suspect]
     Indication: ACNE
     Dosage: 60 MG DAILY ORAL
     Route: 048
     Dates: start: 19960530, end: 19960703
  2. ADVAIR DISKUS 100/50 [Concomitant]
  3. ALBUTEROL SULFATE AUTOHALER [Concomitant]
  4. AUGMENTIN (AMOXICILLIN/CLAVULANIC ACID) [Concomitant]

REACTIONS (2)
  - NO ADVERSE EFFECT [None]
  - PREGNANCY [None]
